FAERS Safety Report 20653022 (Version 2)
Quarter: 2022Q2

REPORT INFORMATION
  Report Type: Spontaneous
  Country: US (occurrence: None)
  Receive Date: 20220330
  Receipt Date: 20220425
  Transmission Date: 20220721
  Serious: No
  Sender: FDA-Public Use
  Company Number: 2022A101389

PATIENT
  Sex: Female
  Weight: 68 kg

DRUGS (1)
  1. BUDESONIDE\FORMOTEROL\GLYCOPYRRONIUM [Suspect]
     Active Substance: BUDESONIDE\FORMOTEROL\GLYCOPYRRONIUM
     Indication: Chronic obstructive pulmonary disease
     Dosage: 160/7.2/5.0 UG, 2 PUFFS, TWO TIMES A DAY
     Route: 055

REACTIONS (4)
  - Feeling abnormal [Unknown]
  - Dyspnoea [Unknown]
  - Drug ineffective [Unknown]
  - Device delivery system issue [Unknown]
